FAERS Safety Report 4802390-4 (Version None)
Quarter: 2005Q4

REPORT INFORMATION
  Report Type: 
  Country: None (occurrence: None)
  Receive Date: 20051014
  Receipt Date: 20041013
  Transmission Date: 20060501
  Serious: Yes (Other)
  Sender: FDA-Public Use
  Company Number: 2004065311

PATIENT
  Sex: Female

DRUGS (3)
  1. NEURONTIN [Suspect]
     Indication: NEURALGIA
     Dosage: 2400 MG (800 MG, 3 IN 1 D), ORAL
     Route: 048
  2. CANNABIS (CANNABIS) [Suspect]
     Indication: ILL-DEFINED DISORDER
  3. HYDROCODONE BITARTRATE [Suspect]
     Indication: ILL-DEFINED DISORDER

REACTIONS (4)
  - ABNORMAL BEHAVIOUR [None]
  - LABORATORY TEST ABNORMAL [None]
  - PREGNANCY [None]
  - SUICIDAL IDEATION [None]
